FAERS Safety Report 4950210-X (Version None)
Quarter: 2006Q1

REPORT INFORMATION
  Report Type: 
  Country: None (occurrence: None)
  Receive Date: 20060315
  Receipt Date: 20060301
  Transmission Date: 20060701
  Serious: Yes (Other)
  Sender: FDA-Public Use
  Company Number: GXKR2006NL01301

PATIENT
  Age: 47 Year
  Sex: Male
  Weight: 65 kg

DRUGS (3)
  1. LORAZEPAM [Suspect]
     Indication: INSOMNIA
     Dosage: ORAL
     Route: 048
     Dates: start: 20041130
  2. RISPERDAL [Suspect]
     Dosage: 1 MG, QD, OCCLUSIVE
     Route: 046
     Dates: start: 20050101, end: 20050101
  3. METFORMIN HYDROCHLORIDE [Concomitant]

REACTIONS (2)
  - GINGIVAL DISORDER [None]
  - TOOTH LOSS [None]
